FAERS Safety Report 6359369-3 (Version None)
Quarter: 2009Q3

REPORT INFORMATION
  Report Type: 
  Country: None (occurrence: None)
  Receive Date: 20090917
  Receipt Date: 20090915
  Transmission Date: 20100115
  Serious: Yes (Death)
  Sender: FDA-Public Use
  Company Number: US-BRISTOL-MYERS SQUIBB COMPANY-14780324

PATIENT
  Age: 74 Year
  Sex: Female
  Weight: 63 kg

DRUGS (4)
  1. ERBITUX [Suspect]
     Indication: NON-SMALL CELL LUNG CANCER
     Dosage: TOTAL NUMBER OF COURSE:8
     Route: 042
     Dates: start: 20090602
  2. CARBOPLATIN [Suspect]
     Indication: NON-SMALL CELL LUNG CANCER
     Dosage: 1 DF = AUC 2 TOTAL NUMBER OF COURSE:8
     Route: 042
     Dates: start: 20090602
  3. TAXOL [Suspect]
     Indication: NON-SMALL CELL LUNG CANCER
     Dosage: TOTAL NUMBER OF COURSE:8
     Route: 042
     Dates: start: 20090602
  4. RADIATION THERAPY [Suspect]
     Indication: NON-SMALL CELL LUNG CANCER
     Dosage: 1 DF = 66GY (TOTAL DOSE),NO.OF FRACTION:33,NO.OF ELAPSED DAYS:46
     Dates: end: 20090724

REACTIONS (1)
  - DEATH [None]
